FAERS Safety Report 9258226 (Version 1)
Quarter: 2013Q1

REPORT INFORMATION
  Report Type: Spontaneous
  Country: US (occurrence: None)
  Receive Date: 20121212
  Receipt Date: 20121212
  Transmission Date: 20140127
  Serious: No
  Sender: FDA-Public Use
  Company Number: 1208USA008871

PATIENT
  Age: 61 Year
  Sex: Female

DRUGS (4)
  1. VICTRELIS ( BOCEPREVIR) CAPSULE, 200 MG [Suspect]
     Route: 048
     Dates: start: 20120504
  2. PEGASYS ( PEGIINTERFERON ALFA-2A) [Concomitant]
  3. RIBASPHERE ( RIBAVIRIN) [Concomitant]
  4. INTEGRA F ( ASCORBIC ACID, FERROUS FUMARATE, FOLIC ACID, NIACIN, POLYSACCHARIDE IRON COMPLEX) CAPSULE [Concomitant]

REACTIONS (6)
  - Muscle spasms [None]
  - Pain [None]
  - White blood cell count decreased [None]
  - Sleep disorder [None]
  - Dyspnoea [None]
  - Anxiety [None]
